FAERS Safety Report 8253108-7 (Version None)
Quarter: 2012Q2

REPORT INFORMATION
  Report Type: 
  Country: None (occurrence: None)
  Receive Date: 20120402
  Receipt Date: 20120302
  Transmission Date: 20120825
  Serious: No
  Sender: FDA-Public Use
  Company Number: US-AMGEN-USASP2012014262

PATIENT
  Age: 26 Year
  Sex: Female

DRUGS (1)
  1. ENBREL [Suspect]
     Indication: RHEUMATOID ARTHRITIS
     Dosage: 50 MG, QWK
     Dates: start: 20120201

REACTIONS (8)
  - OROPHARYNGEAL PAIN [None]
  - HYPERHIDROSIS [None]
  - SINUS CONGESTION [None]
  - FEELING HOT [None]
  - SNEEZING [None]
  - COUGH [None]
  - LACRIMATION INCREASED [None]
  - NASOPHARYNGITIS [None]
